FAERS Safety Report 7724875-3 (Version None)
Quarter: 2011Q3

REPORT INFORMATION
  Report Type: 
  Country: None (occurrence: None)
  Receive Date: 20110901
  Receipt Date: 20110825
  Transmission Date: 20111222
  Serious: Yes (Hospitalization)
  Sender: FDA-Public Use
  Company Number: US-GENZYME-FABR-1002002

PATIENT
  Sex: Female
  Weight: 84.4 kg

DRUGS (10)
  1. ACETAMINOPHEN [Concomitant]
     Indication: PREMEDICATION
     Dosage: 1000 MG, Q2W
     Route: 048
  2. ALTACE [Concomitant]
     Indication: PROTEINURIA
     Dosage: 2.5 MG, QD
     Route: 065
     Dates: start: 20100930
  3. COUMADIN [Concomitant]
     Indication: ANTICOAGULANT THERAPY
     Dosage: UNK UNK, UNK
     Route: 065
     Dates: start: 20040711
  4. LEXAPRO [Concomitant]
     Indication: PRODUCT USED FOR UNKNOWN INDICATION
     Dosage: 10 MG, QD
     Route: 065
     Dates: start: 20060305
  5. CLARINEX [Concomitant]
     Indication: MULTIPLE ALLERGIES
     Dosage: UNK
     Route: 065
     Dates: start: 20071201
  6. GABAPENTIN [Concomitant]
     Indication: NEURALGIA
     Dosage: 200 MG, BID
     Dates: start: 20041117
  7. FABRAZYME [Suspect]
     Dosage: 1 MG/KG, Q2W
     Route: 042
     Dates: start: 20040101, end: 20110201
  8. FABRAZYME [Suspect]
     Indication: FABRY'S DISEASE
     Dosage: 0.5 MG/KG, Q2W
     Route: 042
     Dates: start: 20110208
  9. ASPIRIN [Concomitant]
     Indication: ANTICOAGULANT THERAPY
     Dosage: 81 MG, QD
     Route: 065
     Dates: start: 20040319
  10. BACLOFEN [Concomitant]
     Indication: MUSCULOSKELETAL STIFFNESS
     Dosage: 20 MG, QID
     Route: 065
     Dates: start: 20060602

REACTIONS (1)
  - CEREBROVASCULAR ACCIDENT [None]
